FAERS Safety Report 21321362 (Version 5)
Quarter: 2022Q4

REPORT INFORMATION
  Report Type: Report from Study
  Country: CA (occurrence: CA)
  Receive Date: 20220912
  Receipt Date: 20221229
  Transmission Date: 20230113
  Serious: Yes (Other)
  Sender: FDA-Public Use
  Company Number: CA-NOVARTISPH-NVSC2021CA269223

PATIENT
  Age: 36 Year
  Sex: Female

DRUGS (4)
  1. HYRIMOZ [Suspect]
     Active Substance: ADALIMUMAB-ADAZ
     Indication: Crohn^s disease
     Dosage: 40 MG, Q2W
     Route: 058
     Dates: start: 20210803
  2. HYRIMOZ [Suspect]
     Active Substance: ADALIMUMAB-ADAZ
     Dosage: 40 MG, QW
     Route: 058
  3. PREDNISONE [Concomitant]
     Active Substance: PREDNISONE
     Indication: Product used for unknown indication
     Dosage: 40 MG, QD (FOR 2 WEEKS) THEN REDUCUED 5 MG EACH WEEK THROUGH HER PREGNANCY
     Route: 065
  4. PREDNISONE [Concomitant]
     Active Substance: PREDNISONE
     Dosage: 5 MG, QW (EACH WEEK)
     Route: 065

REACTIONS (18)
  - Rectal haemorrhage [Unknown]
  - Crohn^s disease [Unknown]
  - Bowel movement irregularity [Unknown]
  - Faecal calprotectin increased [Unknown]
  - Weight abnormal [Unknown]
  - Back pain [Unknown]
  - Diarrhoea [Unknown]
  - Oropharyngeal pain [Unknown]
  - Pharyngeal ulceration [Unknown]
  - Pain [Unknown]
  - Anal fissure [Unknown]
  - Aphthous ulcer [Unknown]
  - General physical health deterioration [Unknown]
  - Insomnia [Unknown]
  - Gastrooesophageal reflux disease [Unknown]
  - Abdominal pain [Unknown]
  - Inflammation [Unknown]
  - Off label use [Unknown]

NARRATIVE: CASE EVENT DATE: 20210101
